FAERS Safety Report 23774574 (Version 2)
Quarter: 2024Q2

REPORT INFORMATION
  Report Type: Report from Study
  Country: JP (occurrence: JP)
  Receive Date: 20240423
  Receipt Date: 20240628
  Transmission Date: 20240715
  Serious: Yes (Life-Threatening, Hospitalization)
  Sender: FDA-Public Use
  Company Number: JP-ALNYLAM PHARMACEUTICALS, INC.-ALN-2023-004734

PATIENT

DRUGS (10)
  1. AMVUTTRA [Suspect]
     Active Substance: VUTRISIRAN
     Indication: Hereditary neuropathic amyloidosis
     Dosage: 25 MILLIGRAM, Q3M
     Route: 058
     Dates: start: 20230306, end: 20240206
  2. Chocola a [Concomitant]
     Indication: Vitamin supplementation
     Dosage: 10000 INTERNATIONAL UNIT
     Route: 048
  3. RABEPRAZOLE SODIUM [Concomitant]
     Active Substance: RABEPRAZOLE SODIUM
     Indication: Hereditary neuropathic amyloidosis
     Dosage: 10 MILLIGRAM
     Route: 048
  4. DOMPERIDONE [Concomitant]
     Active Substance: DOMPERIDONE
     Indication: Hereditary neuropathic amyloidosis
     Dosage: 30 MILLIGRAM
     Route: 048
  5. MOSAPRIDE CITRATE [Concomitant]
     Active Substance: MOSAPRIDE CITRATE
     Indication: Hereditary neuropathic amyloidosis
     Dosage: 10 MILLIGRAM
     Route: 048
  6. MIYA-BM [Concomitant]
     Active Substance: CLOSTRIDIUM BUTYRICUM SPORES STRAIN M-55
     Indication: Hereditary neuropathic amyloidosis
     Dosage: 6 DOSAGE FORM
     Route: 048
  7. RAMELTEON [Concomitant]
     Active Substance: RAMELTEON
     Indication: Insomnia
     Dosage: 8 MILLIGRAM
     Route: 048
     Dates: start: 20240328, end: 20240403
  8. SULPIRIDE [Concomitant]
     Active Substance: SULPIRIDE
     Indication: Hereditary neuropathic amyloidosis
     Dosage: 150 MILLIGRAM
     Route: 048
  9. ITOPRIDE [Concomitant]
     Active Substance: ITOPRIDE
     Indication: Hereditary neuropathic amyloidosis
     Dosage: 150 MILLIGRAM
     Route: 048
  10. PERPHENAZINE [Concomitant]
     Active Substance: PERPHENAZINE
     Indication: Prophylaxis of nausea and vomiting
     Dosage: 2 MICROGRAM
     Route: 048

REACTIONS (2)
  - Atrioventricular block complete [Not Recovered/Not Resolved]
  - Dysphagia [Not Recovered/Not Resolved]

NARRATIVE: CASE EVENT DATE: 20230820
